FAERS Safety Report 13679503 (Version 2)
Quarter: 2017Q4

REPORT INFORMATION
  Report Type: Spontaneous
  Country: US (occurrence: US)
  Receive Date: 20170622
  Receipt Date: 20171206
  Transmission Date: 20180320
  Serious: Yes (Other)
  Sender: FDA-Public Use
  Company Number: US-BAYER-2017-113191

PATIENT
  Age: 75 Year
  Sex: Male
  Weight: 81 kg

DRUGS (5)
  1. ARMOUR THYROID [Concomitant]
     Active Substance: THYROID, PORCINE
  2. MICROGENICS PROBIOTIC 8 [Concomitant]
     Active Substance: LACTOBACILLUS ACIDOPHILUS
  3. UNICAP-T [MINERALS NOS,VITAMINS NOS] [Concomitant]
  4. BAYER ASPIRIN [Suspect]
     Active Substance: ASPIRIN
     Route: 048
  5. ALEVE TENS DEVICE DIRECT THERAPY UNIT [Suspect]
     Active Substance: DEVICE
     Indication: PAIN
     Dates: start: 20170526, end: 20170606

REACTIONS (6)
  - Medical device monitoring error [Unknown]
  - Pain [Recovered/Resolved]
  - Contraindicated device used [Unknown]
  - Pain [Recovered/Resolved]
  - Myocardial infarction [Recovered/Resolved]
  - Off label use [Unknown]

NARRATIVE: CASE EVENT DATE: 201602
